FAERS Safety Report 7526280-1 (Version None)
Quarter: 2011Q2

REPORT INFORMATION
  Report Type: 
  Country: None (occurrence: None)
  Receive Date: 20110606
  Receipt Date: 20110531
  Transmission Date: 20111010
  Serious: Yes (Other)
  Sender: FDA-Public Use
  Company Number: US-PFIZER INC-2011117886

PATIENT
  Sex: Female
  Weight: 92.97 kg

DRUGS (13)
  1. HUMIRA [Concomitant]
     Indication: PNEUMONIA
     Dosage: UNK
  2. KLONOPIN [Concomitant]
  3. ARTHROTEC [Concomitant]
     Indication: ARTHRITIS
     Dosage: 75/200 MG/MCG
  4. FOLIC ACID [Concomitant]
     Dosage: 100 MG, UNK
  5. ULTRAM [Concomitant]
     Indication: PAIN
     Dosage: 50 MG, AS NEEDED
  6. TRAZODONE [Concomitant]
     Indication: INSOMNIA
     Dosage: UNK
  7. LYRICA [Suspect]
     Indication: FIBROMYALGIA
     Dosage: 300 MG, 1X/DAY
     Route: 048
     Dates: start: 20070101
  8. KLONOPIN [Concomitant]
     Indication: MUSCLE SPASMS
     Dosage: 0.5 MG, UNK
  9. KLONOPIN [Concomitant]
     Indication: TARSAL TUNNEL SYNDROME
  10. SKELAXIN [Concomitant]
     Indication: MUSCLE SPASMS
     Dosage: UNK, AS NEEDED
  11. KLONOPIN [Concomitant]
  12. ARAVA [Concomitant]
     Indication: ARTHRITIS
     Dosage: 20MG, UNK
  13. KLONOPIN [Concomitant]

REACTIONS (8)
  - SPEECH DISORDER [None]
  - VISION BLURRED [None]
  - TONGUE DISORDER [None]
  - SLUGGISHNESS [None]
  - TARSAL TUNNEL SYNDROME [None]
  - MUSCULAR WEAKNESS [None]
  - DYSSTASIA [None]
  - VERTIGO [None]
